FAERS Safety Report 8221899-7 (Version None)
Quarter: 2012Q1

REPORT INFORMATION
  Report Type: 
  Country: None (occurrence: None)
  Receive Date: 20120320
  Receipt Date: 20120309
  Transmission Date: 20120608
  Serious: Yes (Other)
  Sender: FDA-Public Use
  Company Number: US-JNJFOC-20120302349

PATIENT
  Sex: Female
  Weight: 151.96 kg

DRUGS (16)
  1. LYRICA [Concomitant]
  2. MULTIPLE VITAMIN [Concomitant]
  3. ASCORBIC ACID [Concomitant]
  4. REMICADE [Suspect]
     Indication: RHEUMATOID ARTHRITIS
     Route: 042
     Dates: start: 20060101
  5. CLOTRIMAZOLE [Concomitant]
  6. CALCIUM CARBONATE [Concomitant]
  7. ASPIRIN [Concomitant]
  8. TEKTURNA [Concomitant]
  9. SIMVASTATIN [Concomitant]
  10. METHOTREXATE [Concomitant]
  11. CELEBREX [Concomitant]
  12. DIOVAN [Concomitant]
  13. HYDROCHLOROTHIAZIDE [Concomitant]
  14. FISH OIL [Concomitant]
  15. FOLIC ACID [Concomitant]
  16. PRILOSEC [Concomitant]

REACTIONS (1)
  - MALIGNANT MELANOMA [None]
